FAERS Safety Report 8384854-2 (Version None)
Quarter: 2012Q2

REPORT INFORMATION
  Report Type: 
  Country: None (occurrence: None)
  Receive Date: 20120524
  Receipt Date: 20120518
  Transmission Date: 20120825
  Serious: Yes (Other)
  Sender: FDA-Public Use
  Company Number: BR-PFIZER INC-2010095899

PATIENT
  Age: 61 Year
  Sex: Female
  Weight: 86 kg

DRUGS (6)
  1. ALPRAZOLAM [Suspect]
     Dosage: 2 MG, 2X/DAY
     Route: 048
     Dates: start: 20100430
  2. ALPRAZOLAM [Suspect]
     Dosage: 1 MG, 3X/DAY
     Route: 048
     Dates: start: 20120515
  3. ALPRAZOLAM [Suspect]
     Indication: DEPRESSION
     Dosage: 0.5 MG, 1X/DAY
     Route: 048
     Dates: start: 20020101
  4. CAPTOPRIL [Concomitant]
     Indication: HYPERTENSION
     Dosage: UNK
  5. ATENOLOL [Concomitant]
     Indication: HYPERTENSION
     Dosage: UNK
  6. MODURETIC 5-50 [Concomitant]
     Indication: HYPERTENSION
     Dosage: UNK

REACTIONS (1)
  - BLOOD PRESSURE INCREASED [None]
